FAERS Safety Report 6528504-6 (Version None)
Quarter: 2009Q4

REPORT INFORMATION
  Report Type: 
  Country: None (occurrence: None)
  Receive Date: 20091230
  Receipt Date: 20091214
  Transmission Date: 20100525
  Serious: Yes (Death)
  Sender: FDA-Public Use
  Company Number: 459734

PATIENT
  Age: 55 Year
  Sex: Male

DRUGS (3)
  1. IRINOTECAN HCL [Suspect]
     Indication: COLORECTAL CANCER
     Dosage: INTRAVENOUS
     Route: 042
     Dates: start: 20081202, end: 20090224
  2. AVASTIN [Suspect]
     Indication: COLORECTAL CANCER
     Dosage: INTRAVENOUS
     Route: 042
     Dates: start: 20081202, end: 20090224
  3. XELODA [Suspect]
     Indication: COLORECTAL CANCER
     Dosage: 150 MG, ORAL
     Route: 048
     Dates: start: 20081202, end: 20090224

REACTIONS (1)
  - HAEMOPTYSIS [None]
